FAERS Safety Report 23769900 (Version 1)
Quarter: 2024Q2

REPORT INFORMATION
  Report Type: Spontaneous
  Country: MX (occurrence: MX)
  Receive Date: 20240422
  Receipt Date: 20240422
  Transmission Date: 20240716
  Serious: Yes (Other)
  Sender: FDA-Public Use
  Company Number: MX-BAYER-2024A059971

PATIENT
  Sex: Male

DRUGS (1)
  1. FLANAX CAPS [Suspect]
     Active Substance: NAPROXEN
     Indication: Renal disorder
     Dosage: UNK

REACTIONS (1)
  - Renal injury [Unknown]
